FAERS Safety Report 20669296 (Version 8)
Quarter: 2022Q4

REPORT INFORMATION
  Report Type: Report from Study
  Country: DE (occurrence: DE)
  Receive Date: 20220404
  Receipt Date: 20221201
  Transmission Date: 20230112
  Serious: Yes (Hospitalization, Other)
  Sender: FDA-Public Use
  Company Number: DE-NOVARTISPH-NVSC2022DE074394

PATIENT
  Age: 60 Year
  Sex: Male
  Weight: 83 kg

DRUGS (2)
  1. SIPONIMOD [Suspect]
     Active Substance: SIPONIMOD
     Indication: Secondary progressive multiple sclerosis
     Dosage: UNK
     Route: 048
     Dates: start: 20140218, end: 20160214
  2. SIPONIMOD [Suspect]
     Active Substance: SIPONIMOD
     Indication: Secondary progressive multiple sclerosis
     Dosage: 2 MG, QD
     Route: 048
     Dates: start: 20160215

REACTIONS (3)
  - Bowen^s disease [Recovered/Resolved]
  - Squamous cell carcinoma [Recovered/Resolved]
  - Squamous cell carcinoma [Not Recovered/Not Resolved]

NARRATIVE: CASE EVENT DATE: 20170918
